FAERS Safety Report 11552259 (Version 3)
Quarter: 2015Q4

REPORT INFORMATION
  Report Type: Report from Study
  Country: AR (occurrence: AR)
  Receive Date: 20150925
  Receipt Date: 20151028
  Transmission Date: 20160304
  Serious: Yes (Other)
  Sender: FDA-Public Use
  Company Number: PHHY2015AR115367

PATIENT
  Sex: Female

DRUGS (1)
  1. DIOVAN D [Suspect]
     Active Substance: HYDROCHLOROTHIAZIDE\VALSARTAN
     Indication: HYPERTENSION
     Dosage: 1 DF (VALSARTAN 80 MG AND HYDROCHOLOROTHIAZIDE 12.5 MG), QD
     Route: 065

REACTIONS (4)
  - Type 2 diabetes mellitus [Unknown]
  - Hyperglycaemia [Recovering/Resolving]
  - Hypertension [Unknown]
  - Diabetes mellitus [Recovering/Resolving]
